FAERS Safety Report 25093022 (Version 3)
Quarter: 2025Q2

REPORT INFORMATION
  Report Type: Report from Study
  Country: US (occurrence: US)
  Receive Date: 20250319
  Receipt Date: 20250417
  Transmission Date: 20250716
  Serious: No
  Sender: SYNDAX
  Company Number: US-SYNDAX PHARMACEUTICALS, INC.-2025US000249

PATIENT
  Sex: Male

DRUGS (1)
  1. REVUFORJ [Suspect]
     Active Substance: REVUMENIB CITRATE
     Indication: Product used for unknown indication
     Dosage: 270 MILLIGRAM, BID
     Route: 048

REACTIONS (3)
  - Faeces pale [Unknown]
  - Pyrexia [Unknown]
  - Nausea [Unknown]
